FAERS Safety Report 5676863-9 (Version None)
Quarter: 2008Q1

REPORT INFORMATION
  Report Type: 
  Country: None (occurrence: None)
  Receive Date: 20080324
  Receipt Date: 20080312
  Transmission Date: 20080703
  Serious: Yes (Hospitalization)
  Sender: FDA-Public Use
  Company Number: JP-ELI_LILLY_AND_COMPANY-JP200803002024

PATIENT
  Sex: Male

DRUGS (4)
  1. ZYPREXA [Suspect]
     Indication: SCHIZOPHRENIA
     Dosage: 10 MG, DAILY (1/D)
     Route: 048
  2. ZYPREXA [Suspect]
     Dosage: 280 MG, UNK
     Route: 048
     Dates: start: 20080301, end: 20080301
  3. PAXIL [Concomitant]
     Route: 048
  4. LITHIUM CARBONATE [Concomitant]
     Route: 048

REACTIONS (2)
  - ANAPHYLACTOID SHOCK [None]
  - OVERDOSE [None]
